FAERS Safety Report 11391150 (Version 11)
Quarter: 2019Q4

REPORT INFORMATION
  Report Type: Report from Study
  Country: CA (occurrence: CA)
  Receive Date: 20150818
  Receipt Date: 20191211
  Transmission Date: 20200122
  Serious: Yes (Other)
  Sender: FDA-Public Use
  Company Number: CA-ROCHE-1619344

PATIENT
  Age: 64 Year
  Sex: Female
  Weight: 80 kg

DRUGS (8)
  1. ESBRIET [Suspect]
     Active Substance: PIRFENIDONE
     Route: 048
     Dates: start: 20150716, end: 20180702
  2. ACETYLCYSTEINE. [Concomitant]
     Active Substance: ACETYLCYSTEINE
  3. CITALOPRAM [Concomitant]
     Active Substance: CITALOPRAM HYDROBROMIDE
  4. ESBRIET [Suspect]
     Active Substance: PIRFENIDONE
     Route: 048
     Dates: start: 20180703
  5. PANTOLOC [PANTOPRAZOLE] [Concomitant]
     Active Substance: PANTOPRAZOLE SODIUM
  6. ESBRIET [Suspect]
     Active Substance: PIRFENIDONE
     Indication: IDIOPATHIC PULMONARY FIBROSIS
     Route: 048
     Dates: start: 20150630, end: 2015
  7. ESBRIET [Suspect]
     Active Substance: PIRFENIDONE
     Route: 048
     Dates: start: 201507, end: 20150715
  8. SALBUTAMOL [Concomitant]
     Active Substance: ALBUTEROL

REACTIONS (10)
  - Nausea [Not Recovered/Not Resolved]
  - Abdominal discomfort [Recovering/Resolving]
  - Weight decreased [Unknown]
  - Asthenia [Not Recovered/Not Resolved]
  - Dyspepsia [Recovering/Resolving]
  - Constipation [Not Recovered/Not Resolved]
  - Panic disorder [Unknown]
  - Decreased appetite [Unknown]
  - Angina pectoris [Not Recovered/Not Resolved]
  - Stress [Unknown]

NARRATIVE: CASE EVENT DATE: 20150716
